FAERS Safety Report 9752487 (Version 1)
Quarter: 2013Q4

REPORT INFORMATION
  Report Type: Spontaneous
  Country: US (occurrence: None)
  Receive Date: 20131212
  Receipt Date: 20131212
  Transmission Date: 20140711
  Serious: Yes (Other)
  Sender: FDA-Public Use
  Company Number: None

PATIENT
  Age: 86 Year
  Sex: Female
  Weight: 58.97 kg

DRUGS (6)
  1. BRILINTA [Suspect]
     Indication: ARTERIAL OCCLUSIVE DISEASE
     Dosage: 90 MG?1 PILL W/81 MG ASPIRIN?TWICE DAILY?MOUTH TABLET
     Route: 048
     Dates: start: 20130922, end: 20131129
  2. BRILINTA [Suspect]
     Indication: MYOCARDIAL INFARCTION
     Dosage: 90 MG?1 PILL W/81 MG ASPIRIN?TWICE DAILY?MOUTH TABLET
     Route: 048
     Dates: start: 20130922, end: 20131129
  3. BRILINTA [Suspect]
     Indication: STENT PLACEMENT
     Dosage: 90 MG?1 PILL W/81 MG ASPIRIN?TWICE DAILY?MOUTH TABLET
     Route: 048
     Dates: start: 20130922, end: 20131129
  4. CLOPIDOGREL [Concomitant]
  5. METOPROLOL [Concomitant]
  6. ATORVASTATIN [Concomitant]

REACTIONS (4)
  - Dyspnoea [None]
  - Respiratory tract congestion [None]
  - Wheezing [None]
  - Cough [None]
